FAERS Safety Report 9780816 (Version 2)
Quarter: 2013Q4

REPORT INFORMATION
  Report Type: Spontaneous
  Country: FR (occurrence: FR)
  Receive Date: 20131224
  Receipt Date: 20131231
  Transmission Date: 20140711
  Serious: Yes (Hospitalization, Other)
  Sender: FDA-Public Use
  Company Number: FR-ROCHE-1325055

PATIENT
  Age: 70 Year
  Sex: Male

DRUGS (1)
  1. XOLAIR [Suspect]
     Indication: ASTHMA
     Route: 058

REACTIONS (4)
  - Upper respiratory tract infection [Not Recovered/Not Resolved]
  - Lung infection [Recovered/Resolved]
  - Asthma [Recovered/Resolved]
  - Prostate cancer [Unknown]
